FAERS Safety Report 5712649-4 (Version None)
Quarter: 2008Q2

REPORT INFORMATION
  Report Type: 
  Country: None (occurrence: None)
  Receive Date: 20080422
  Receipt Date: 20080407
  Transmission Date: 20081010
  Serious: Yes (Other)
  Sender: FDA-Public Use
  Company Number: DE-BAYER-200816405GPV

PATIENT

DRUGS (1)
  1. AVELOX [Suspect]
     Indication: DRUG USE FOR UNKNOWN INDICATION
     Route: 065

REACTIONS (8)
  - ASTHENIA [None]
  - DIZZINESS [None]
  - GAIT DISTURBANCE [None]
  - HEADACHE [None]
  - MENTAL DISORDER [None]
  - MUSCULAR WEAKNESS [None]
  - NERVOUS SYSTEM DISORDER [None]
  - PSYCHOSOMATIC DISEASE [None]
